FAERS Safety Report 13515420 (Version 1)
Quarter: 2017Q2

REPORT INFORMATION
  Report Type: Spontaneous
  Country: US (occurrence: US)
  Receive Date: 20170504
  Receipt Date: 20170504
  Transmission Date: 20170830
  Serious: No
  Sender: FDA-Public Use
  Company Number: US-BAUSCH-BL-2016-007789

PATIENT
  Sex: Female

DRUGS (1)
  1. ZYCLARA [Suspect]
     Active Substance: IMIQUIMOD
     Indication: PRODUCT USED FOR UNKNOWN INDICATION
     Dosage: 3 TIMES A WEEK FOR 2 WEEKS ON AND 2 WEEKS OFF, 2 WEEKS ON
     Route: 065

REACTIONS (1)
  - Cataract [Unknown]
